FAERS Safety Report 24770525 (Version 1)
Quarter: 2024Q4

REPORT INFORMATION
  Report Type: Spontaneous
  Country: GB (occurrence: GB)
  Receive Date: 20241224
  Receipt Date: 20241224
  Transmission Date: 20250114
  Serious: Yes (Other)
  Sender: RANBAXY
  Company Number: GB-SUN PHARMACEUTICAL INDUSTRIES LTD-2024RR-485270

PATIENT
  Age: 19 Year
  Sex: Female
  Weight: 74 kg

DRUGS (11)
  1. CODEINE [Suspect]
     Active Substance: CODEINE
     Indication: Ill-defined disorder
     Dosage: UNK
     Route: 065
     Dates: start: 20241209
  2. LANSOPRAZOLE [Concomitant]
     Active Substance: LANSOPRAZOLE
     Indication: Ill-defined disorder
     Dosage: TAKE ONE ONCE DAILY (WHEN TAKING NAPROXEN)
     Route: 065
     Dates: start: 20240923, end: 20241021
  3. NAPROXEN [Concomitant]
     Active Substance: NAPROXEN
     Indication: Ill-defined disorder
     Dosage: TAKE ONE TWICE DAILY
     Route: 065
     Dates: start: 20240923, end: 20241021
  4. SUMATRIPTAN [Concomitant]
     Active Substance: SUMATRIPTAN
     Indication: Ill-defined disorder
     Dosage: TAKE ONE TABLET FOLLOWED BY ONE TABLET AT LEAST...
     Route: 065
     Dates: start: 20240923, end: 20241021
  5. NITROFURANTOIN [Concomitant]
     Active Substance: NITROFURANTOIN
     Indication: Ill-defined disorder
     Dosage: TAKE ONE TWICE DAILY
     Route: 065
     Dates: start: 20241015, end: 20241018
  6. NITROGLYCERIN [Concomitant]
     Active Substance: NITROGLYCERIN
     Indication: Ill-defined disorder
     Dosage: APPLY 2.5CM TO THE ANUS 12 HOURLY UNTIL SYMPTOM...
     Route: 065
     Dates: start: 20241018, end: 20241115
  7. BUTYLSCOPOLAMINE BROMIDE [Concomitant]
     Active Substance: BUTYLSCOPOLAMINE BROMIDE
     Indication: Ill-defined disorder
     Dosage: TAKE TWO 3 TIMES/DAY
     Route: 065
     Dates: start: 20241209
  8. TRAMADOL [Concomitant]
     Active Substance: TRAMADOL
     Indication: Ill-defined disorder
     Dosage: TAKE 1 EVERY 6 HRS
     Route: 065
     Dates: start: 20241209
  9. MEBEVERINE [Concomitant]
     Active Substance: MEBEVERINE
     Indication: Ill-defined disorder
     Dosage: TAKE ONE 3 TIMES/DAY, DOSE PREFERABLY TAKEN 20 ...
     Route: 065
     Dates: start: 20230913
  10. BECLOMETHASONE\FORMOTEROL [Concomitant]
     Active Substance: BECLOMETHASONE\FORMOTEROL
     Indication: Ill-defined disorder
     Dosage: MAINTANCE ONE OR TWO DOSES TWICE DAILY AND ONE ...
     Route: 065
     Dates: start: 20240208
  11. AMITRIPTYLINE [Concomitant]
     Active Substance: AMITRIPTYLINE
     Indication: Ill-defined disorder
     Dosage: TAKE 2 AT NIGHT
     Route: 065
     Dates: start: 20240304

REACTIONS (1)
  - Discoloured vomit [Recovered/Resolved]

NARRATIVE: CASE EVENT DATE: 20241209
